FAERS Safety Report 8880689 (Version 3)
Quarter: 2013Q2

REPORT INFORMATION
  Report Type: Spontaneous
  Country: US (occurrence: US)
  Receive Date: 20121101
  Receipt Date: 20130510
  Transmission Date: 20140414
  Serious: Yes (Death, Hospitalization)
  Sender: FDA-Public Use
  Company Number: US-GLAXOSMITHKLINE-A0782343A

PATIENT
  Age: 94 Year
  Sex: Female

DRUGS (12)
  1. PROMACTA [Suspect]
     Indication: IDIOPATHIC THROMBOCYTOPENIC PURPURA
     Dosage: 25MG UNKNOWN
     Route: 048
     Dates: start: 20090407, end: 20120905
  2. VANCOMYCIN [Suspect]
     Indication: PRODUCT USED FOR UNKNOWN INDICATION
     Route: 042
  3. LYRICA [Concomitant]
     Indication: HERPES ZOSTER
  4. XANAX [Concomitant]
  5. CARVEDILOL [Concomitant]
  6. ENALAPRIL [Concomitant]
     Indication: BLOOD PRESSURE
  7. TYLENOL EXTRA STRENGTH [Concomitant]
  8. SERTRALINE [Concomitant]
  9. METHENAMINE [Concomitant]
  10. CRANBERRY [Concomitant]
  11. VITAMIN C [Concomitant]
  12. CULTURELLE [Concomitant]

REACTIONS (18)
  - Cardio-respiratory arrest [Fatal]
  - Urinary tract infection [Not Recovered/Not Resolved]
  - Clostridium difficile infection [Not Recovered/Not Resolved]
  - Decreased appetite [Unknown]
  - Dysgeusia [Unknown]
  - Diarrhoea [Unknown]
  - Nausea [Unknown]
  - Vomiting [Unknown]
  - Myalgia [Unknown]
  - Platelet count decreased [Unknown]
  - Infection [Unknown]
  - Pyrexia [Not Recovered/Not Resolved]
  - Fatigue [Not Recovered/Not Resolved]
  - Asthenia [Not Recovered/Not Resolved]
  - Disturbance in attention [Not Recovered/Not Resolved]
  - Nosocomial infection [Unknown]
  - Hypersomnia [Unknown]
  - Drug administration error [Unknown]
